FAERS Safety Report 8006273-0 (Version None)
Quarter: 2011Q4

REPORT INFORMATION
  Report Type: 
  Country: None (occurrence: None)
  Receive Date: 20111226
  Receipt Date: 20111222
  Transmission Date: 20120403
  Serious: Yes (Death, Other)
  Sender: FDA-Public Use
  Company Number: PHHY2011DE111453

PATIENT
  Sex: Male
  Weight: 107 kg

DRUGS (3)
  1. TORISEL [Concomitant]
     Dosage: 25 MG, UNK
     Dates: start: 20110419, end: 20110503
  2. ZOMETA [Suspect]
     Indication: BONE DISORDER
     Dosage: 4 MG EVERY 4 WEEKS
     Route: 042
     Dates: start: 20110412, end: 20110412
  3. FENISTIL [Concomitant]
     Dates: start: 20110419, end: 20110503

REACTIONS (2)
  - DEATH [None]
  - GENERAL PHYSICAL HEALTH DETERIORATION [None]
